FAERS Safety Report 9249081 (Version 2)
Quarter: 2013Q3

REPORT INFORMATION
  Report Type: Spontaneous
  Country: JP (occurrence: JP)
  Receive Date: 20130423
  Receipt Date: 20130806
  Transmission Date: 20140515
  Serious: Yes (Other)
  Sender: FDA-Public Use
  Company Number: JP-BAYER-2013-048347

PATIENT
  Age: 83 Year
  Sex: Male

DRUGS (12)
  1. NEXAVAR [Suspect]
     Indication: HEPATOCELLULAR CARCINOMA
     Dosage: 400 MG, QD
     Route: 048
     Dates: start: 20110914, end: 20110922
  2. NEXAVAR [Suspect]
     Indication: HEPATOCELLULAR CARCINOMA
     Dosage: 200 MG, QD
     Route: 048
     Dates: start: 20110923, end: 20111011
  3. NEXAVAR [Suspect]
     Indication: HEPATOCELLULAR CARCINOMA
     Dosage: 400 MG, QD
     Route: 048
     Dates: start: 20111012, end: 20111023
  4. NEXAVAR [Suspect]
     Indication: HEPATOCELLULAR CARCINOMA
     Dosage: 200 MG, QD
     Route: 048
     Dates: start: 20111024, end: 20111106
  5. NEXAVAR [Suspect]
     Indication: HEPATOCELLULAR CARCINOMA
     Dosage: 400 MG, QOD
     Route: 048
     Dates: start: 20111107
  6. GLYCYRON [AMINOACETIC ACID,DL-METHIONINE,GLYCYRRHIZIC ACID] [Concomitant]
     Indication: CHRONIC HEPATITIS
     Dosage: 1 DF, BID
     Route: 048
  7. SUNRYTHM [Concomitant]
     Indication: ARRHYTHMIA
     Dosage: 50 MG, BID
     Route: 048
  8. FLIVAS [Concomitant]
     Indication: DYSURIA
     Dosage: 25 MG, QD
     Route: 048
  9. CALBLOCK [Concomitant]
     Indication: HYPERTENSION
     Dosage: 16 MG, QD
     Route: 048
  10. ACTOS [Concomitant]
     Indication: DIABETES MELLITUS
     Dosage: 30 MG, QD
     Route: 048
  11. PURSENNID [Concomitant]
     Indication: CONSTIPATION
     Dosage: 36 MG, QD
     Route: 048
  12. TELMISARTAN [Concomitant]
     Indication: HYPERTENSION
     Dosage: 1 DF, QD
     Route: 048

REACTIONS (3)
  - Hepatic encephalopathy [Recovered/Resolved]
  - Palmar-plantar erythrodysaesthesia syndrome [Recovered/Resolved]
  - Dysphonia [Recovered/Resolved]
